FAERS Safety Report 11045150 (Version 3)
Quarter: 2015Q4

REPORT INFORMATION
  Report Type: Report from Study
  Country: US (occurrence: US)
  Receive Date: 20150417
  Receipt Date: 20151118
  Transmission Date: 20160304
  Serious: Yes (Other)
  Sender: FDA-Public Use
  Company Number: PHEH2015US006967

PATIENT
  Age: 48 Year
  Sex: Female

DRUGS (1)
  1. GLEEVEC [Suspect]
     Active Substance: IMATINIB MESYLATE
     Indication: PRODUCT USED FOR UNKNOWN INDICATION
     Dosage: 400 MG, UNK
     Route: 048

REACTIONS (12)
  - Fatigue [Unknown]
  - Neoplasm malignant [Unknown]
  - Pruritus [Unknown]
  - Bone pain [Unknown]
  - Fear of death [Unknown]
  - Chest pain [Unknown]
  - Malaise [Not Recovered/Not Resolved]
  - Inflammation [Unknown]
  - Back pain [Unknown]
  - Swelling [Unknown]
  - Blood urine present [Unknown]
  - Anxiety [Unknown]

NARRATIVE: CASE EVENT DATE: 20150801
